FAERS Safety Report 22189518 (Version 1)
Quarter: 2023Q2

REPORT INFORMATION
  Report Type: Spontaneous
  Country: US (occurrence: US)
  Receive Date: 20230410
  Receipt Date: 20230410
  Transmission Date: 20230722
  Serious: Yes (Other)
  Sender: FDA-Public Use
  Company Number: US-BRISTOL-MYERS SQUIBB COMPANY-2023-048434

PATIENT
  Age: 68 Year
  Sex: Male

DRUGS (2)
  1. REVLIMID [Suspect]
     Active Substance: LENALIDOMIDE
     Indication: Plasma cell myeloma
     Dosage: : 1 TIME A DAY FOR 21 DAYS ON THEN 7 DAYS OFF.
     Route: 048
     Dates: start: 202205
  2. LENALIDOMIDE [Suspect]
     Active Substance: LENALIDOMIDE
     Indication: Plasma cell myeloma
     Dosage: : 1 TIME A DAY FOR 21 DAYS ON THEN 7 DAYS OFF.

REACTIONS (1)
  - Plasma cell myeloma [Unknown]
